FAERS Safety Report 5165292-2 (Version None)
Quarter: 2006Q4

REPORT INFORMATION
  Report Type: 
  Country: None (occurrence: None)
  Receive Date: 20061124
  Receipt Date: 20061114
  Transmission Date: 20070319
  Serious: Yes (Hospitalization)
  Sender: FDA-Public Use
  Company Number: 2006142409

PATIENT
  Age: 33 Year
  Sex: Male
  Weight: 44.1 kg

DRUGS (2)
  1. GENOTROPIN [Suspect]
     Indication: GROWTH HORMONE DEFICIENCY
     Dosage: 0.2 MG (5.3 MG, DAILY), SUBCUTANEOUS
     Route: 058
     Dates: start: 20041204
  2. ACTONEL [Concomitant]

REACTIONS (2)
  - GOITRE [None]
  - HYPERPARATHYROIDISM PRIMARY [None]
